FAERS Safety Report 7617587-8 (Version None)
Quarter: 2011Q3

REPORT INFORMATION
  Report Type: 
  Country: None (occurrence: None)
  Receive Date: 20110718
  Receipt Date: 20110705
  Transmission Date: 20111222
  Serious: Yes (Other)
  Sender: FDA-Public Use
  Company Number: NL-JNJFOC-20110305882

PATIENT
  Age: 45 Year
  Sex: Female
  Weight: 75 kg

DRUGS (3)
  1. INFLIXIMAB [Suspect]
     Dosage: 5TH INFUSION
     Route: 042
     Dates: start: 20060215
  2. INFLIXIMAB [Suspect]
     Dosage: 4TH INFUSION
     Route: 042
  3. INFLIXIMAB [Suspect]
     Indication: HIDRADENITIS
     Dosage: AT WEEK 0, 2, AND 6
     Route: 042
     Dates: start: 20050905

REACTIONS (2)
  - DRUG SPECIFIC ANTIBODY PRESENT [None]
  - POLYARTHRITIS [None]
